FAERS Safety Report 24011158 (Version 1)
Quarter: 2024Q2

REPORT INFORMATION
  Report Type: Spontaneous
  Country: US (occurrence: US)
  Receive Date: 20240625
  Receipt Date: 20240625
  Transmission Date: 20240715
  Serious: No
  Sender: FDA-Public Use
  Company Number: US-ELI_LILLY_AND_COMPANY-US202406016614

PATIENT
  Age: 66 Year

DRUGS (1)
  1. HUMALOG [Suspect]
     Active Substance: INSULIN LISPRO
     Indication: Product used for unknown indication
     Dosage: 20 U, TID (4-20 UNITS 3 TIMES DAILY WITH MEALS)
     Route: 058

REACTIONS (1)
  - Glycosylated haemoglobin increased [Unknown]
